FAERS Safety Report 23464084 (Version 2)
Quarter: 2024Q1

REPORT INFORMATION
  Report Type: Other
  Country: JP (occurrence: JP)
  Receive Date: 20240201
  Receipt Date: 20240223
  Transmission Date: 20240410
  Serious: Yes (Other)
  Sender: FDA-Public Use
  Company Number: JP-ROCHE-3500310

PATIENT
  Age: 45 Year
  Sex: Female

DRUGS (9)
  1. MYCOPHENOLATE MOFETIL [Suspect]
     Active Substance: MYCOPHENOLATE MOFETIL
     Indication: Systemic scleroderma
     Route: 065
     Dates: start: 2022
  2. PREDNISOLONE [Suspect]
     Active Substance: PREDNISOLONE
     Indication: Vasculitis
     Route: 048
     Dates: start: 202106
  3. PREDNISOLONE [Suspect]
     Active Substance: PREDNISOLONE
     Route: 048
     Dates: end: 202201
  4. PREDNISOLONE [Suspect]
     Active Substance: PREDNISOLONE
     Route: 048
  5. SILVER SULFADIAZENE [Concomitant]
     Active Substance: SILVER SULFADIAZINE
     Indication: Systemic scleroderma
     Dates: start: 201606
  6. BERAPROST SODIUM [Concomitant]
     Active Substance: BERAPROST SODIUM
     Indication: Systemic scleroderma
     Route: 048
     Dates: start: 201710
  7. BOSENTAN [Concomitant]
     Active Substance: BOSENTAN
     Indication: Systemic scleroderma
     Dates: start: 201711, end: 202106
  8. BOSENTAN [Concomitant]
     Active Substance: BOSENTAN
     Dates: start: 202106
  9. URSODIOL [Concomitant]
     Active Substance: URSODIOL
     Indication: Systemic scleroderma
     Dates: start: 201711

REACTIONS (4)
  - Extradural abscess [Unknown]
  - Skin ulcer [Unknown]
  - Postoperative wound infection [Not Recovered/Not Resolved]
  - Off label use [Unknown]
